FAERS Safety Report 19232848 (Version 2)
Quarter: 2021Q2

REPORT INFORMATION
  Report Type: Report from Study
  Country: US (occurrence: US)
  Receive Date: 20210507
  Receipt Date: 20210512
  Transmission Date: 20210717
  Serious: No
  Sender: FDA-Public Use
  Company Number: US-IPSEN BIOPHARMACEUTICALS, INC.-2021-11320

PATIENT
  Sex: Female
  Weight: 127 kg

DRUGS (2)
  1. SOMATULINE DEPOT [Suspect]
     Active Substance: LANREOTIDE ACETATE
     Indication: ACROMEGALY
     Dates: start: 201509
  2. CABERGOLINE. [Suspect]
     Active Substance: CABERGOLINE
     Indication: ACROMEGALY
     Dosage: DOSE NOT REPORTED
     Route: 048

REACTIONS (2)
  - Hepatic enzyme increased [Recovered/Resolved]
  - Product administered by wrong person [Unknown]
